FAERS Safety Report 4331858-2 (Version None)
Quarter: 2004Q2

REPORT INFORMATION
  Report Type: 
  Country: None (occurrence: None)
  Receive Date: 20040405
  Receipt Date: 20031222
  Transmission Date: 20050107
  Serious: No
  Sender: FDA-Public Use
  Company Number: US-GLAXOSMITHKLINE-A0443938A

PATIENT
  Age: 56 Year
  Sex: Male

DRUGS (2)
  1. FLOVENT [Suspect]
     Indication: ILL-DEFINED DISORDER
     Dosage: 220MCG FOUR TIMES PER DAY
     Route: 065
     Dates: start: 20031029
  2. PREVACID [Concomitant]

REACTIONS (2)
  - PRURITUS ANI [None]
  - RASH [None]
